FAERS Safety Report 25891670 (Version 2)
Quarter: 2025Q4

REPORT INFORMATION
  Report Type: Report from Study
  Country: US (occurrence: US)
  Receive Date: 20251007
  Receipt Date: 20251121
  Transmission Date: 20260117
  Serious: Yes (Hospitalization, Other)
  Sender: ABBVIE
  Company Number: US-ABBVIE-6378186

PATIENT
  Age: 36 Year
  Sex: Male

DRUGS (1)
  1. RINVOQ [Suspect]
     Active Substance: UPADACITINIB
     Indication: Crohn^s disease
     Route: 048
     Dates: start: 20240916

REACTIONS (6)
  - Gastrointestinal scarring [Recovering/Resolving]
  - Psoriasis [Not Recovered/Not Resolved]
  - Haematoma [Not Recovered/Not Resolved]
  - Surgery [Recovering/Resolving]
  - Unevaluable event [Unknown]
  - Abscess [Recovering/Resolving]
